FAERS Safety Report 9711190 (Version 1)
Quarter: 2013Q4

REPORT INFORMATION
  Report Type: Spontaneous
  Country: US (occurrence: US)
  Receive Date: 20131126
  Receipt Date: 20131126
  Transmission Date: 20140711
  Serious: No
  Sender: FDA-Public Use
  Company Number: US-BRISTOL-MYERS SQUIBB COMPANY-19199553

PATIENT
  Age: 59 Year
  Sex: Male

DRUGS (8)
  1. BYETTA PEN DISPOSABLE [Suspect]
     Indication: TYPE 2 DIABETES MELLITUS
     Route: 058
  2. PIOGLITAZONE HCL [Suspect]
  3. GLYBURIDE [Suspect]
     Dosage: 2 TABLETS TWICE DAILY
  4. JANUVIA [Suspect]
  5. LOSARTAN [Concomitant]
  6. TAMSULOSIN [Concomitant]
  7. ATORVASTATIN [Concomitant]
  8. HYDROCHLOROTHIAZIDE [Concomitant]

REACTIONS (1)
  - Drug ineffective [Unknown]
